FAERS Safety Report 4957059-2 (Version None)
Quarter: 2006Q1

REPORT INFORMATION
  Report Type: 
  Country: None (occurrence: None)
  Receive Date: 20060329
  Receipt Date: 20051227
  Transmission Date: 20060701
  Serious: Yes (Hospitalization)
  Sender: FDA-Public Use
  Company Number: FI-ABBOTT-05P-055-0320780-00

PATIENT
  Sex: Female
  Weight: 79 kg

DRUGS (8)
  1. HUMIRA [Suspect]
     Indication: PSORIATIC ARTHROPATHY
     Route: 058
     Dates: start: 20051212, end: 20051212
  2. PREDNISOLONE [Concomitant]
     Indication: PSORIATIC ARTHROPATHY
     Route: 048
     Dates: start: 20040407
  3. LEKOVIT CA [Concomitant]
     Indication: MINERAL SUPPLEMENTATION
     Route: 048
     Dates: start: 20040406
  4. METOPROLOL SUCCINATE [Concomitant]
     Indication: HYPERTENSION
     Dates: start: 19950101, end: 20060109
  5. RAMIPRIL [Concomitant]
     Indication: HYPERTENSION
     Route: 048
     Dates: start: 20040401, end: 20060109
  6. AMTRID MITE [Concomitant]
     Indication: HYPERTENSION
     Route: 048
     Dates: start: 20050801, end: 20060109
  7. METHOTREXATE [Concomitant]
     Indication: PSORIATIC ARTHROPATHY
     Route: 058
     Dates: start: 20041101, end: 20051116
  8. CITALOPRAM HYDROBROMIDE [Concomitant]
     Indication: DEPRESSION
     Route: 048
     Dates: start: 20051010, end: 20060113

REACTIONS (27)
  - ABDOMINAL PAIN [None]
  - ABDOMINAL PAIN UPPER [None]
  - ALCOHOLISM [None]
  - ASCITES [None]
  - CHROMATURIA [None]
  - COLITIS [None]
  - CYTOMEGALOVIRUS INFECTION [None]
  - DRUG INTERACTION [None]
  - FIBROSIS [None]
  - GALLBLADDER DISORDER [None]
  - GASTRITIS [None]
  - GASTROINTESTINAL DISORDER [None]
  - HAEMATEMESIS [None]
  - HEPATIC CIRRHOSIS [None]
  - HEPATIC STEATOSIS [None]
  - HEPATIC TRAUMA [None]
  - HEPATITIS [None]
  - HEPATITIS D [None]
  - HYPERBILIRUBINAEMIA [None]
  - INFLAMMATION [None]
  - JAUNDICE [None]
  - MELAENA [None]
  - OEDEMA [None]
  - PSORIATIC ARTHROPATHY [None]
  - VARICOSE VEIN [None]
  - VOMITING [None]
  - WEIGHT INCREASED [None]
